FAERS Safety Report 24574751 (Version 1)
Quarter: 2024Q4

REPORT INFORMATION
  Report Type: Spontaneous
  Country: US (occurrence: US)
  Receive Date: 20241104
  Receipt Date: 20241104
  Transmission Date: 20250114
  Serious: No
  Sender: SERVIER
  Company Number: US-SERVIER-S24013393

PATIENT

DRUGS (1)
  1. VORASIDENIB [Suspect]
     Active Substance: VORASIDENIB
     Indication: Brain neoplasm
     Dosage: UNK
     Route: 048

REACTIONS (1)
  - Fatigue [Recovered/Resolved]
